FAERS Safety Report 7072771-X (Version None)
Quarter: 2010Q4

REPORT INFORMATION
  Report Type: 
  Country: None (occurrence: None)
  Receive Date: 20101029
  Receipt Date: 20100311
  Transmission Date: 20110411
  Serious: No
  Sender: FDA-Public Use
  Company Number: A0849696A

PATIENT
  Age: 35 Year
  Sex: Female

DRUGS (4)
  1. ADVAIR DISKUS 100/50 [Suspect]
     Indication: ASTHMA
     Dosage: 1PUFF TWICE PER DAY
     Route: 055
     Dates: start: 20100101, end: 20100310
  2. ADVAIR DISKUS 100/50 [Suspect]
     Dosage: 1PUFF TWICE PER DAY
     Route: 055
  3. CLARITIN [Concomitant]
  4. SINGULAIR [Concomitant]

REACTIONS (4)
  - DRUG INEFFECTIVE [None]
  - PRURITUS [None]
  - RASH [None]
  - TINEA INFECTION [None]
